FAERS Safety Report 6758655-2 (Version None)
Quarter: 2010Q2

REPORT INFORMATION
  Report Type: 
  Country: None (occurrence: None)
  Receive Date: 20100607
  Receipt Date: 20100527
  Transmission Date: 20101027
  Serious: Yes (Hospitalization, Other)
  Sender: FDA-Public Use
  Company Number: CA-JNJFOC-20100509238

PATIENT
  Sex: Female
  Weight: 71.5 kg

DRUGS (3)
  1. REMICADE [Suspect]
     Indication: RHEUMATOID ARTHRITIS
     Route: 042
  2. REMICADE [Suspect]
     Route: 042
  3. REMICADE [Suspect]
     Route: 042

REACTIONS (5)
  - BILE DUCT STONE [None]
  - CHOLANGITIS [None]
  - HEPATIC ENZYME ABNORMAL [None]
  - JOINT EFFUSION [None]
  - PYREXIA [None]
